FAERS Safety Report 13524202 (Version 1)
Quarter: 2017Q2

REPORT INFORMATION
  Report Type: Spontaneous
  Country: US (occurrence: US)
  Receive Date: 20170508
  Receipt Date: 20170508
  Transmission Date: 20170830
  Serious: Yes (Hospitalization, Other)
  Sender: FDA-Public Use
  Company Number: US-TEVA-766035USA

PATIENT
  Age: 43 Year
  Sex: Female

DRUGS (2)
  1. VENLAFAXINE [Suspect]
     Active Substance: VENLAFAXINE HYDROCHLORIDE
     Dosage: 75MG DAILY; LATER, DOSE REDUCED TO 37.5MG EVERY 48 HOURS
     Route: 065
     Dates: start: 2014
  2. VENLAFAXINE [Suspect]
     Active Substance: VENLAFAXINE HYDROCHLORIDE
     Dosage: DOSE REDUCTION BEYOND THIS LEVEL WAS NOT POSSIBLE
     Route: 065
     Dates: start: 2014

REACTIONS (6)
  - Chest pain [Recovered/Resolved]
  - Nausea [Recovered/Resolved]
  - Withdrawal syndrome [Recovered/Resolved]
  - Hyperhidrosis [Recovered/Resolved]
  - Irritability [Recovered/Resolved]
  - Vertigo [Recovered/Resolved]
